FAERS Safety Report 8250900-X (Version None)
Quarter: 2012Q1

REPORT INFORMATION
  Report Type: 
  Country: None (occurrence: None)
  Receive Date: 20120328
  Receipt Date: 20120319
  Transmission Date: 20120608
  Serious: Yes (Death)
  Sender: FDA-Public Use
  Company Number: DSU-2012-02165

PATIENT
  Age: 74 Year
  Sex: Male
  Weight: 88.4514 kg

DRUGS (4)
  1. ASPIRIN [Concomitant]
  2. BENICAR [Suspect]
     Indication: HYPERTENSION
     Dosage: 20 MG (20 MG, QD, PER ORAL
     Route: 048
  3. PLAVIX [Concomitant]
  4. COUMADIN [Concomitant]

REACTIONS (1)
  - DEATH [None]
